FAERS Safety Report 18016535 (Version 1)
Quarter: 2020Q3

REPORT INFORMATION
  Report Type: Report from Study
  Country: GB (occurrence: GB)
  Receive Date: 20200713
  Receipt Date: 20200713
  Transmission Date: 20201103
  Serious: Yes (Other)
  Sender: FDA-Public Use
  Company Number: NVSC2020GB139520

PATIENT
  Sex: Male

DRUGS (2)
  1. HYRIMOZ [Suspect]
     Active Substance: ADALIMUMAB-ADAZ
     Dosage: 40 MG, Q2W
     Route: 058
  2. HYRIMOZ [Suspect]
     Active Substance: ADALIMUMAB-ADAZ
     Indication: COLITIS ULCERATIVE
     Dosage: 160 MG (WEEK 0), WEEK 0 WITH 160MG, WEEK 2 WITH 80MG, WEEK 4 WITH 40MG
     Route: 065
     Dates: start: 20200506

REACTIONS (3)
  - Rectal abscess [Unknown]
  - Faeces hard [Unknown]
  - Pyrexia [Unknown]
